FAERS Safety Report 19593838 (Version 2)
Quarter: 2021Q3

REPORT INFORMATION
  Report Type: Report from Study
  Country: US (occurrence: US)
  Receive Date: 20210722
  Receipt Date: 20210826
  Transmission Date: 20211014
  Serious: Yes (Hospitalization, Other)
  Sender: FDA-Public Use
  Company Number: US-TAKEDA-2021TUS035564

PATIENT
  Age: 70 Year
  Sex: Female

DRUGS (44)
  1. TEDUGLUTIDE [Suspect]
     Active Substance: TEDUGLUTIDE
     Dosage: 0.025 UNK
     Route: 065
     Dates: start: 20200706, end: 20200727
  2. TEDUGLUTIDE [Suspect]
     Active Substance: TEDUGLUTIDE
     Dosage: 0.025 UNK
     Route: 065
     Dates: start: 20201221, end: 20210412
  3. TEDUGLUTIDE [Suspect]
     Active Substance: TEDUGLUTIDE
     Dosage: 1.7 MILLIGRAM (0.025MG/KG), 4/WEEK
     Route: 065
     Dates: start: 20201221
  4. TEDUGLUTIDE [Suspect]
     Active Substance: TEDUGLUTIDE
     Dosage: 1.7 MILLIGRAM (0.025MG/KG), 4/WEEK
     Route: 065
     Dates: start: 20201221
  5. TEDUGLUTIDE [Suspect]
     Active Substance: TEDUGLUTIDE
     Dosage: 0.025 UNK
     Route: 065
     Dates: start: 20200727, end: 20201214
  6. TEDUGLUTIDE [Suspect]
     Active Substance: TEDUGLUTIDE
     Dosage: 0.025 UNK
     Route: 065
     Dates: start: 20210427, end: 20210505
  7. TEDUGLUTIDE [Suspect]
     Active Substance: TEDUGLUTIDE
     Dosage: 1.7 MILLIGRAM, QD
     Route: 065
     Dates: start: 20200224, end: 20200626
  8. TEDUGLUTIDE [Suspect]
     Active Substance: TEDUGLUTIDE
     Dosage: 1.7 MILLIGRAM, QD
     Route: 065
     Dates: start: 20200727, end: 20201214
  9. TEDUGLUTIDE [Suspect]
     Active Substance: TEDUGLUTIDE
     Indication: SHORT-BOWEL SYNDROME
     Dosage: 0.025 UNK
     Route: 065
     Dates: start: 20200224, end: 20200626
  10. TEDUGLUTIDE [Suspect]
     Active Substance: TEDUGLUTIDE
     Dosage: 0.025 UNK
     Route: 065
     Dates: start: 20200727, end: 20201214
  11. TEDUGLUTIDE [Suspect]
     Active Substance: TEDUGLUTIDE
     Dosage: 0.025 UNK
     Route: 065
     Dates: start: 20201221, end: 20210412
  12. TEDUGLUTIDE [Suspect]
     Active Substance: TEDUGLUTIDE
     Dosage: 0.025 UNK
     Route: 065
     Dates: start: 20201221, end: 20210412
  13. TEDUGLUTIDE [Suspect]
     Active Substance: TEDUGLUTIDE
     Dosage: 1.7 MILLIGRAM (0.025MG/KG), 4/WEEK
     Route: 065
     Dates: start: 20200706, end: 20200727
  14. TEDUGLUTIDE [Suspect]
     Active Substance: TEDUGLUTIDE
     Dosage: 1.7 MILLIGRAM, QD
     Route: 065
     Dates: start: 20200727, end: 20201214
  15. TEDUGLUTIDE [Suspect]
     Active Substance: TEDUGLUTIDE
     Dosage: 1.7 MILLIGRAM, QD
     Route: 065
     Dates: start: 20200727, end: 20201214
  16. TEDUGLUTIDE [Suspect]
     Active Substance: TEDUGLUTIDE
     Dosage: 0.025 UNK
     Route: 065
     Dates: start: 20200727, end: 20201214
  17. TEDUGLUTIDE [Suspect]
     Active Substance: TEDUGLUTIDE
     Dosage: 0.025 UNK
     Route: 065
     Dates: start: 20201221, end: 20210412
  18. PAROXETINE. [Concomitant]
     Active Substance: PAROXETINE
     Indication: DEPRESSION
     Dosage: 20 MILLIGRAM, QHS?AT BEDTIME,NI
     Route: 048
     Dates: start: 20200413
  19. ZOFRAN [Concomitant]
     Active Substance: ONDANSETRON HYDROCHLORIDE
     Indication: PRODUCT USED FOR UNKNOWN INDICATION
     Dosage: 4 MILLIGRAM, AS NECESSARY
     Route: 048
     Dates: start: 20190416
  20. MULTIVITAMIN [Concomitant]
     Active Substance: VITAMINS
     Indication: PRODUCT USED FOR UNKNOWN INDICATION
     Route: 065
  21. TEDUGLUTIDE [Suspect]
     Active Substance: TEDUGLUTIDE
     Indication: SHORT-BOWEL SYNDROME
     Dosage: 0.025 UNK
     Route: 065
     Dates: start: 20200224, end: 20200626
  22. TEDUGLUTIDE [Suspect]
     Active Substance: TEDUGLUTIDE
     Dosage: 0.025 UNK
     Route: 065
     Dates: start: 20210427, end: 20210505
  23. TEDUGLUTIDE [Suspect]
     Active Substance: TEDUGLUTIDE
     Dosage: 0.025 UNK
     Route: 065
     Dates: start: 20210505
  24. TEDUGLUTIDE [Suspect]
     Active Substance: TEDUGLUTIDE
     Dosage: 1.7 MILLIGRAM, QD
     Route: 065
     Dates: start: 20200224, end: 20200626
  25. PRILOSEC [Concomitant]
     Active Substance: OMEPRAZOLE MAGNESIUM
     Indication: GASTROOESOPHAGEAL REFLUX DISEASE
     Dosage: 20 MILLIGRAM, QD
     Route: 048
     Dates: start: 20200930
  26. TEDUGLUTIDE [Suspect]
     Active Substance: TEDUGLUTIDE
     Indication: SHORT-BOWEL SYNDROME
     Dosage: 0.025 UNK
     Route: 065
     Dates: start: 20200224, end: 20200626
  27. TEDUGLUTIDE [Suspect]
     Active Substance: TEDUGLUTIDE
     Indication: SHORT-BOWEL SYNDROME
     Dosage: 0.025 UNK
     Route: 065
     Dates: start: 20200224, end: 20200626
  28. TEDUGLUTIDE [Suspect]
     Active Substance: TEDUGLUTIDE
     Dosage: 0.025 UNK
     Route: 065
     Dates: start: 20200706, end: 20200727
  29. TEDUGLUTIDE [Suspect]
     Active Substance: TEDUGLUTIDE
     Dosage: 0.025 UNK
     Route: 065
     Dates: start: 20200727, end: 20201214
  30. TEDUGLUTIDE [Suspect]
     Active Substance: TEDUGLUTIDE
     Dosage: 0.025 UNK
     Route: 065
     Dates: start: 20210427, end: 20210505
  31. TEDUGLUTIDE [Suspect]
     Active Substance: TEDUGLUTIDE
     Dosage: 0.025 UNK
     Route: 065
     Dates: start: 20210427, end: 20210505
  32. TEDUGLUTIDE [Suspect]
     Active Substance: TEDUGLUTIDE
     Dosage: 0.025 UNK
     Route: 065
     Dates: start: 20210505
  33. TEDUGLUTIDE [Suspect]
     Active Substance: TEDUGLUTIDE
     Dosage: 0.025 UNK
     Route: 065
     Dates: start: 20210505
  34. TEDUGLUTIDE [Suspect]
     Active Substance: TEDUGLUTIDE
     Dosage: 0.025 UNK
     Route: 065
     Dates: start: 20210505
  35. TEDUGLUTIDE [Suspect]
     Active Substance: TEDUGLUTIDE
     Dosage: 1.7 MILLIGRAM (0.025MG/KG), 4/WEEK
     Route: 065
     Dates: start: 20200706, end: 20200727
  36. TEDUGLUTIDE [Suspect]
     Active Substance: TEDUGLUTIDE
     Dosage: 1.7 MILLIGRAM (0.025MG/KG), 4/WEEK
     Route: 065
     Dates: start: 20200706, end: 20200727
  37. TEDUGLUTIDE [Suspect]
     Active Substance: TEDUGLUTIDE
     Dosage: 0.025 UNK
     Route: 065
     Dates: start: 20200706, end: 20200727
  38. TEDUGLUTIDE [Suspect]
     Active Substance: TEDUGLUTIDE
     Dosage: 1.7 MILLIGRAM (0.025MG/KG), 4/WEEK
     Route: 065
     Dates: start: 20200706, end: 20200727
  39. TEDUGLUTIDE [Suspect]
     Active Substance: TEDUGLUTIDE
     Dosage: 1.7 MILLIGRAM (0.025MG/KG), 4/WEEK
     Route: 065
     Dates: start: 20201221
  40. TEDUGLUTIDE [Suspect]
     Active Substance: TEDUGLUTIDE
     Dosage: 0.025 UNK
     Route: 065
     Dates: start: 20200706, end: 20200727
  41. TEDUGLUTIDE [Suspect]
     Active Substance: TEDUGLUTIDE
     Dosage: 1.7 MILLIGRAM, QD
     Route: 065
     Dates: start: 20200224, end: 20200626
  42. TEDUGLUTIDE [Suspect]
     Active Substance: TEDUGLUTIDE
     Dosage: 1.7 MILLIGRAM, QD
     Route: 065
     Dates: start: 20200224, end: 20200626
  43. TEDUGLUTIDE [Suspect]
     Active Substance: TEDUGLUTIDE
     Dosage: 1.7 MILLIGRAM, QD
     Route: 065
     Dates: start: 20200727, end: 20201214
  44. TEDUGLUTIDE [Suspect]
     Active Substance: TEDUGLUTIDE
     Dosage: 1.7 MILLIGRAM (0.025MG/KG), 4/WEEK
     Route: 065
     Dates: start: 20201221

REACTIONS (3)
  - Intestinal obstruction [Recovered/Resolved]
  - Hypertension [Not Recovered/Not Resolved]
  - Pneumonia [Recovered/Resolved]

NARRATIVE: CASE EVENT DATE: 202006
